FAERS Safety Report 7321661-3 (Version None)
Quarter: 2011Q1

REPORT INFORMATION
  Report Type: 
  Country: None (occurrence: None)
  Receive Date: 20110228
  Receipt Date: 20101129
  Transmission Date: 20110831
  Serious: No
  Sender: FDA-Public Use
  Company Number: A0897535A

PATIENT
  Age: 83 Year
  Sex: Female

DRUGS (1)
  1. VALTREX [Suspect]
     Dosage: 500MG UNKNOWN
     Route: 048
     Dates: start: 20100618

REACTIONS (1)
  - PAIN [None]
